FAERS Safety Report 15961302 (Version 1)
Quarter: 2019Q1

REPORT INFORMATION
  Report Type: Spontaneous
  Country: US (occurrence: US)
  Receive Date: 20190122
  Receipt Date: 20190122
  Transmission Date: 20190417
  Serious: Yes (Death)
  Sender: FDA-Public Use
  Company Number: None

PATIENT
  Age: 71 Year
  Sex: Female

DRUGS (1)
  1. POMALYST [Suspect]
     Active Substance: POMALIDOMIDE
     Indication: PLASMA CELL MYELOMA
     Route: 048
     Dates: start: 20181217, end: 20190108

REACTIONS (7)
  - Acute respiratory failure [None]
  - Human metapneumovirus test positive [None]
  - Respiratory failure [None]
  - Pneumonia [None]
  - Bronchial hyperreactivity [None]
  - General physical health deterioration [None]
  - Sepsis [None]

NARRATIVE: CASE EVENT DATE: 20190108
